FAERS Safety Report 22772199 (Version 3)
Quarter: 2024Q1

REPORT INFORMATION
  Report Type: Report from Study
  Country: US (occurrence: US)
  Receive Date: 20230801
  Receipt Date: 20240313
  Transmission Date: 20240410
  Serious: Yes (Hospitalization, Other)
  Sender: FDA-Public Use
  Company Number: US-BAXTER-2023BAX024413

PATIENT
  Age: 18 Year
  Sex: Male
  Weight: 71 kg

DRUGS (27)
  1. DOXORUBICIN [Suspect]
     Active Substance: DOXORUBICIN
     Indication: Acute lymphocytic leukaemia
     Dosage: 48 MILLIGRAM ONCE ON DAYS 1, 8, 15 OD D1
     Route: 042
     Dates: start: 20220524, end: 20220607
  2. DOXORUBICIN [Suspect]
     Active Substance: DOXORUBICIN
     Dosage: 48 MG, LAST DOSE PRIOR TO SAE
     Route: 042
     Dates: start: 20220607
  3. CYCLOPHOSPHAMIDE [Suspect]
     Active Substance: CYCLOPHOSPHAMIDE
     Indication: Acute lymphocytic leukaemia
     Dosage: 1900 MG, ONCE
     Route: 042
     Dates: start: 20211214
  4. RUXOLITINIB [Suspect]
     Active Substance: RUXOLITINIB
     Indication: Acute lymphocytic leukaemia
     Dosage: 90 MILLIGRAM, BID FOR 14 DAYS, INCB 18424
     Route: 048
     Dates: start: 20211214, end: 20230530
  5. RUXOLITINIB [Suspect]
     Active Substance: RUXOLITINIB
     Dosage: LAST DOSE PRIOR TO THE SAES, INCB 18424
     Route: 065
     Dates: start: 20230529
  6. RUXOLITINIB [Suspect]
     Active Substance: RUXOLITINIB
     Dosage: UNK, MAINTANANCE CYCLE 4 DAY 1
     Route: 065
     Dates: start: 20230621
  7. CYTARABINE [Suspect]
     Active Substance: CYTARABINE
     Indication: Acute lymphocytic leukaemia
     Dosage: 145 MG, D36-39
     Route: 042
     Dates: start: 20211214, end: 20211217
  8. METHOTREXATE [Suspect]
     Active Substance: METHOTREXATE
     Indication: Acute lymphocytic leukaemia
     Dosage: 37.5 MILLIGRAM, WEEKLY
     Route: 048
     Dates: start: 20211214, end: 20230530
  9. METHOTREXATE [Suspect]
     Active Substance: METHOTREXATE
     Dosage: 15 MILLIGRAM, DAY1 MC3
     Route: 037
     Dates: start: 20211214
  10. METHOTREXATE [Suspect]
     Active Substance: METHOTREXATE
     Dosage: 9335 MILLIGRAM (D1, 15, 29, 43 OF IM1), HIGH DOSE
     Route: 042
     Dates: start: 20220301, end: 20220427
  11. METHOTREXATE [Suspect]
     Active Substance: METHOTREXATE
     Dosage: LAST DOSE PRIOR TO THE SAES
     Route: 048
     Dates: start: 20230524
  12. METHOTREXATE [Suspect]
     Active Substance: METHOTREXATE
     Dosage: LAST DOSE PRIOR TO THE SAES
     Route: 037
     Dates: start: 20230329
  13. METHOTREXATE [Suspect]
     Active Substance: METHOTREXATE
     Dosage: UNK
     Route: 065
     Dates: start: 20230612
  14. VINCRISTINE [Suspect]
     Active Substance: VINCRISTINE
     Indication: Acute lymphocytic leukaemia
     Dosage: 2 MILLIGRAM, ONCE
     Route: 042
     Dates: start: 20211214
  15. VINCRISTINE [Suspect]
     Active Substance: VINCRISTINE
     Dosage: LAST DOSE PRIOR TO THE SAES
     Route: 065
     Dates: start: 20230524
  16. PEGASPARGASE [Suspect]
     Active Substance: PEGASPARGASE
     Indication: Acute lymphocytic leukaemia
     Dosage: 3750 IU D2,22 IM2
     Route: 042
     Dates: start: 20211215
  17. PEGASPARGASE [Suspect]
     Active Substance: PEGASPARGASE
     Dosage: LAST DOSE PRIOR TO THE SAES
     Route: 065
     Dates: start: 20220902
  18. LEUCOVORIN [Suspect]
     Active Substance: LEUCOVORIN\LEUCOVORIN CALCIUM
     Indication: Acute lymphocytic leukaemia
     Dosage: 28 MG D45-46 OF IM1
     Route: 065
     Dates: start: 20220301, end: 20220302
  19. LEUCOVORIN [Suspect]
     Active Substance: LEUCOVORIN\LEUCOVORIN CALCIUM
     Dosage: LAST DOSE PRIOR TO THE SAES
     Route: 065
     Dates: start: 20220429
  20. DEXAMETHASONE [Suspect]
     Active Substance: DEXAMETHASONE
     Indication: Acute lymphocytic leukaemia
     Dosage: 10 MG, BID
     Route: 048
     Dates: start: 20220524
  21. DEXAMETHASONE [Suspect]
     Active Substance: DEXAMETHASONE
     Dosage: LAST DOSE PRIOR TO THE SAES
     Route: 065
     Dates: start: 20220704
  22. THIOGUANINE [Suspect]
     Active Substance: THIOGUANINE
     Indication: Acute lymphocytic leukaemia
     Dosage: 40 MG (3 TABS QD FOR 5 DAYS AND 2.5 TABS QD FOR 2 DAYS PER WEEK ON DAYS 29-42 OF DI)
     Route: 048
     Dates: start: 20220628, end: 20220711
  23. MERCAPTOPURINE [Suspect]
     Active Substance: MERCAPTOPURINE
     Indication: Acute lymphocytic leukaemia
     Dosage: 50 MILLIGRAM, QD
     Route: 048
     Dates: start: 20211214, end: 20230530
  24. MERCAPTOPURINE [Suspect]
     Active Substance: MERCAPTOPURINE
     Dosage: LAST DOSE PRIOR TO THE SAES
     Route: 065
     Dates: start: 20230529
  25. MERCAPTOPURINE [Suspect]
     Active Substance: MERCAPTOPURINE
     Dosage: UNK
     Route: 065
     Dates: start: 20120612
  26. BACTRIM [Concomitant]
     Active Substance: SULFAMETHOXAZOLE\TRIMETHOPRIM
     Dosage: UNK
     Route: 065
     Dates: start: 20230324
  27. ISAVUCONAZONIUM [Concomitant]
     Active Substance: ISAVUCONAZONIUM
     Route: 065

REACTIONS (13)
  - Oxygen saturation decreased [Recovered/Resolved]
  - Scrotal oedema [Recovered/Resolved]
  - Skin lesion [Recovered/Resolved]
  - Septic shock [Recovered/Resolved]
  - Hypokalaemia [Recovered/Resolved]
  - Neutropenia [Recovered/Resolved]
  - Thrombocytopenia [Recovered/Resolved]
  - Anaemia [Recovered/Resolved]
  - Pyrexia [Recovered/Resolved]
  - Dyspnoea [Recovered/Resolved]
  - Pharyngitis streptococcal [Recovered/Resolved]
  - Wound infection [Recovered/Resolved]
  - Sepsis [Recovered/Resolved]

NARRATIVE: CASE EVENT DATE: 20230530
